FAERS Safety Report 12005380 (Version 1)
Quarter: 2016Q1

REPORT INFORMATION
  Report Type: Spontaneous
  Country: US (occurrence: US)
  Receive Date: 20160204
  Receipt Date: 20160204
  Transmission Date: 20160526
  Serious: Yes (Death, Other)
  Sender: FDA-Public Use
  Company Number: US-ELI_LILLY_AND_COMPANY-US201602000161

PATIENT
  Age: 60 Year
  Sex: Male

DRUGS (18)
  1. TYVASO [Suspect]
     Active Substance: TREPROSTINIL
     Indication: PULMONARY ARTERIAL HYPERTENSION
     Dosage: 54 UG, QID
     Route: 055
     Dates: start: 20150630
  2. RESVERATROL [Concomitant]
     Active Substance: RESVERATROL
  3. OMEGA 3                            /01333901/ [Concomitant]
     Active Substance: FISH OIL\TOCOPHEROL
  4. HYDROCODONE BITARTRATE. [Concomitant]
     Active Substance: HYDROCODONE BITARTRATE
  5. ROPINIROLE. [Concomitant]
     Active Substance: ROPINIROLE
  6. SIMVASTATIN. [Concomitant]
     Active Substance: SIMVASTATIN
  7. SPIRONOLACTONE. [Concomitant]
     Active Substance: SPIRONOLACTONE
  8. HAWTHORN                           /01349301/ [Concomitant]
     Active Substance: HAWTHORN LEAF WITH FLOWER
  9. CARVEDILOL. [Concomitant]
     Active Substance: CARVEDILOL
  10. ADCIRCA [Suspect]
     Active Substance: TADALAFIL
     Indication: PRODUCT USED FOR UNKNOWN INDICATION
     Route: 065
  11. AMBRISENTAN [Suspect]
     Active Substance: AMBRISENTAN
     Indication: PULMONARY ARTERIAL HYPERTENSION
     Dosage: 5 MG, QD
     Route: 065
     Dates: start: 20150913, end: 20150927
  12. ZOLPIDEM TARTRATE. [Concomitant]
     Active Substance: ZOLPIDEM TARTRATE
  13. BUSPIRONE HYDROCHLORIDE. [Concomitant]
     Active Substance: BUSPIRONE HYDROCHLORIDE
  14. SPIRIVA [Concomitant]
     Active Substance: TIOTROPIUM BROMIDE MONOHYDRATE
  15. COUMADIN [Concomitant]
     Active Substance: WARFARIN SODIUM
  16. FAMOTIDINE AN [Concomitant]
  17. LASIX [Concomitant]
     Active Substance: FUROSEMIDE
  18. CO Q 10                            /00517201/ [Concomitant]

REACTIONS (8)
  - Ventricular fibrillation [Fatal]
  - Flushing [Recovered/Resolved]
  - Nausea [Recovered/Resolved]
  - Drug intolerance [Recovered/Resolved]
  - Ascites [Unknown]
  - Dyspnoea [Recovered/Resolved]
  - Pulmonary hypertension [Fatal]
  - Dizziness [Unknown]

NARRATIVE: CASE EVENT DATE: 20151007
